FAERS Safety Report 16475230 (Version 1)
Quarter: 2019Q2

REPORT INFORMATION
  Report Type: Spontaneous
  Country: US (occurrence: US)
  Receive Date: 20190625
  Receipt Date: 20190625
  Transmission Date: 20190711
  Serious: No
  Sender: FDA-Public Use
  Company Number: US-SA-2019SA169440

PATIENT
  Age: 43 Year
  Sex: Female
  Weight: 81.6 kg

DRUGS (2)
  1. IRON [Concomitant]
     Active Substance: IRON
     Dosage: 325 MG, 1-2 TIMES, DAILY
     Route: 065
  2. FABRAZYME [Suspect]
     Active Substance: AGALSIDASE BETA
     Indication: FABRY^S DISEASE
     Dosage: 0.91 MG/KG
     Route: 041
     Dates: start: 20180601

REACTIONS (1)
  - Pain [Not Recovered/Not Resolved]
